FAERS Safety Report 16455795 (Version 1)
Quarter: 2019Q2

REPORT INFORMATION
  Report Type: Spontaneous
  Country: US (occurrence: US)
  Receive Date: 20190619
  Receipt Date: 20190619
  Transmission Date: 20190711
  Serious: No
  Sender: FDA-Public Use
  Company Number: US-009507513-1905USA010857

PATIENT
  Sex: Male

DRUGS (2)
  1. SINEMET [Suspect]
     Active Substance: CARBIDOPA\LEVODOPA
     Dosage: ORDERED IN THE UNITED STATES
     Route: 048
  2. SINEMET PLUS [Suspect]
     Active Substance: CARBIDOPA\LEVODOPA
     Dosage: ORDERED FROM THE UNITED KINGDOM
     Route: 048
     Dates: start: 2019

REACTIONS (4)
  - Product availability issue [Unknown]
  - Circumstance or information capable of leading to medication error [Unknown]
  - Therapeutic product effect variable [Unknown]
  - Nervousness [Unknown]

NARRATIVE: CASE EVENT DATE: 2019
